FAERS Safety Report 17860633 (Version 2)
Quarter: 2020Q2

REPORT INFORMATION
  Report Type: Spontaneous
  Country: US (occurrence: US)
  Receive Date: 20200604
  Receipt Date: 20200605
  Transmission Date: 20200714
  Serious: No
  Sender: FDA-Public Use
  Company Number: US-SA-2020SA141926

PATIENT

DRUGS (1)
  1. SOLIQUA 100/33 [Suspect]
     Active Substance: INSULIN GLARGINE\LIXISENATIDE

REACTIONS (4)
  - Device operational issue [Unknown]
  - Injection site haemorrhage [Unknown]
  - Device difficult to use [Unknown]
  - Injection site swelling [Unknown]
